FAERS Safety Report 12206981 (Version 1)
Quarter: 2016Q1

REPORT INFORMATION
  Report Type: Spontaneous
  Country: US (occurrence: None)
  Receive Date: 20160323
  Receipt Date: 20160323
  Transmission Date: 20160526
  Serious: Yes (Disabling, Other)
  Sender: FDA-Public Use
  Company Number: None

PATIENT
  Age: 73 Year
  Sex: Male
  Weight: 79.38 kg

DRUGS (5)
  1. OXYBUTNIN 10MG ER TABS 1 DAILY AT BEDTIME [Suspect]
     Active Substance: OXYBUTYNIN
     Indication: POLLAKIURIA
     Route: 048
  2. OXYBUTNIN 10MG ER TABS 1 DAILY AT BEDTIME [Suspect]
     Active Substance: OXYBUTYNIN
     Indication: DRUG THERAPY
     Route: 048
  3. VITAMIN E [Concomitant]
     Active Substance: .ALPHA.-TOCOPHEROL
  4. VIT B [Concomitant]
     Active Substance: VITAMIN B
  5. VITAMIN D3 [Concomitant]
     Active Substance: CHOLECALCIFEROL

REACTIONS (4)
  - Nasopharyngitis [None]
  - Urinary tract infection [None]
  - Rhinorrhoea [None]
  - No therapeutic response [None]

NARRATIVE: CASE EVENT DATE: 20090808
